FAERS Safety Report 6681873-9 (Version None)
Quarter: 2010Q2

REPORT INFORMATION
  Report Type: 
  Country: None (occurrence: None)
  Receive Date: 20100412
  Receipt Date: 20100326
  Transmission Date: 20101027
  Serious: Yes (Life-Threatening, Hospitalization, Other)
  Sender: FDA-Public Use
  Company Number: 2010SCPR000408

PATIENT
  Age: 16 Year
  Sex: Female

DRUGS (4)
  1. DOXEPIN HCL [Suspect]
     Indication: DRUG USE FOR UNKNOWN INDICATION
  2. MOCLOBEMIDE (MOCLOBEMIDE) UNKNOWN [Suspect]
     Indication: DEPRESSION
     Dosage: 300 MG, QD
  3. ACETAMINOPHEN [Suspect]
     Indication: DRUG USE FOR UNKNOWN INDICATION
  4. WICK MEDINAIT /01062901/ (DEXTROMETHORPHAN HYDROBROMIDE) [Suspect]
     Indication: DRUG USE FOR UNKNOWN INDICATION

REACTIONS (18)
  - ASPIRATION [None]
  - CHEST X-RAY ABNORMAL [None]
  - COMA [None]
  - DRUG TOXICITY [None]
  - HYPOTHERMIA [None]
  - HYPOTONIA [None]
  - HYPOXIA [None]
  - LOSS OF CONSCIOUSNESS [None]
  - MYDRIASIS [None]
  - OVERDOSE [None]
  - OXYGEN SATURATION DECREASED [None]
  - PUPILLARY LIGHT REFLEX TESTS ABNORMAL [None]
  - PUPILS UNEQUAL [None]
  - RENAL FAILURE ACUTE [None]
  - RHABDOMYOLYSIS [None]
  - SHOCK [None]
  - STRABISMUS [None]
  - SUICIDE ATTEMPT [None]
